FAERS Safety Report 16686244 (Version 1)
Quarter: 2019Q3

REPORT INFORMATION
  Report Type: Report from Study
  Country: KR (occurrence: KR)
  Receive Date: 20190809
  Receipt Date: 20190809
  Transmission Date: 20191004
  Serious: Yes (Other)
  Sender: FDA-Public Use
  Company Number: KR-CELLTRION INC.-2019KR023431

PATIENT

DRUGS (1)
  1. REMSIMA [Suspect]
     Active Substance: INFLIXIMAB
     Indication: ANKYLOSING SPONDYLITIS
     Dosage: LAST DOSE ADMINISTERED PRIOR TO THE EVENT
     Route: 065
     Dates: start: 20190508

REACTIONS (1)
  - Spinal stenosis [Not Recovered/Not Resolved]
